FAERS Safety Report 7215994-9 (Version None)
Quarter: 2011Q1

REPORT INFORMATION
  Report Type: 
  Country: None (occurrence: None)
  Receive Date: 20110104
  Receipt Date: 20110104
  Transmission Date: 20110831
  Serious: Yes (Life-Threatening, Hospitalization)
  Sender: FDA-Public Use
  Company Number: None

PATIENT
  Age: 30 Year
  Sex: Male
  Weight: 118.8424 kg

DRUGS (2)
  1. CLOZAPINE [Suspect]
     Indication: SCHIZOPHRENIA
     Dosage: TITRATED UP DAILY TO BID PO
     Route: 048
     Dates: start: 20101212, end: 20101225
  2. CLOZAPINE [Suspect]
     Dosage: TITRATED UP DAILY TO BID PO
     Route: 048

REACTIONS (5)
  - MYOCARDITIS [None]
  - DIARRHOEA [None]
  - CONFUSIONAL STATE [None]
  - RASH [None]
  - TACHYCARDIA [None]
